FAERS Safety Report 22383245 (Version 1)
Quarter: 2023Q2

REPORT INFORMATION
  Report Type: Report from Study
  Country: CA (occurrence: CA)
  Receive Date: 20230530
  Receipt Date: 20230530
  Transmission Date: 20230721
  Serious: Yes (Other)
  Sender: FDA-Public Use
  Company Number: CA-JNJFOC-20230559606

PATIENT
  Age: 32 Year
  Sex: Female

DRUGS (3)
  1. EPOPROSTENOL SODIUM [Suspect]
     Active Substance: EPOPROSTENOL SODIUM
     Indication: Pulmonary hypertension
     Route: 042
     Dates: start: 20180820
  2. AMBRISENTAN [Concomitant]
     Active Substance: AMBRISENTAN
  3. RIVAROXABAN [Concomitant]
     Active Substance: RIVAROXABAN

REACTIONS (1)
  - Lung transplant [Unknown]

NARRATIVE: CASE EVENT DATE: 20230501
